FAERS Safety Report 20029119 (Version 1)
Quarter: 2021Q4

REPORT INFORMATION
  Report Type: Other
  Country: NP (occurrence: None)
  Receive Date: 20211103
  Receipt Date: 20211103
  Transmission Date: 20220303
  Serious: Yes (Other)
  Sender: FDA-Public Use
  Company Number: NP-Navinta LLC-000204

PATIENT
  Age: 52 Year
  Sex: Female

DRUGS (2)
  1. INDOMETHACIN [Suspect]
     Active Substance: INDOMETHACIN
     Indication: Periarthritis
     Dosage: 75 MG EXTENDED-RELEASE TABLET
  2. METOPROLOL [Concomitant]
     Active Substance: METOPROLOL
     Indication: Prophylaxis

REACTIONS (1)
  - Hypertensive crisis [Recovered/Resolved]
